FAERS Safety Report 7595948-3 (Version None)
Quarter: 2011Q3

REPORT INFORMATION
  Report Type: 
  Country: None (occurrence: None)
  Receive Date: 20110707
  Receipt Date: 20110623
  Transmission Date: 20111222
  Serious: Yes (Other)
  Sender: FDA-Public Use
  Company Number: PHHY2011FR42701

PATIENT
  Sex: Female
  Weight: 59 kg

DRUGS (3)
  1. ZOLEDRONOC ACID [Suspect]
     Indication: OSTEOPOROSIS POSTMENOPAUSAL
     Dosage: 5 MG, UNK
     Dates: start: 20100623
  2. FENOFIBRATE [Concomitant]
     Indication: HYPERLIPIDAEMIA
     Dosage: 300 MG, QD
     Route: 048
     Dates: start: 20070101
  3. GINKOR FORT [Concomitant]
     Dosage: 2 DF/ DAY
     Route: 048
     Dates: start: 20030101

REACTIONS (12)
  - PYREXIA [None]
  - CHOLESTASIS [None]
  - GAMMA-GLUTAMYLTRANSFERASE INCREASED [None]
  - C-REACTIVE PROTEIN INCREASED [None]
  - RED BLOOD CELL SEDIMENTATION RATE INCREASED [None]
  - PAIN [None]
  - VOMITING [None]
  - HAEMOGLOBIN DECREASED [None]
  - MYALGIA [None]
  - BLOOD ALKALINE PHOSPHATASE INCREASED [None]
  - INFLAMMATION [None]
  - ASTHENIA [None]
